FAERS Safety Report 12066448 (Version 7)
Quarter: 2023Q4

REPORT INFORMATION
  Report Type: Spontaneous
  Country: US (occurrence: US)
  Receive Date: 20160210
  Receipt Date: 20231124
  Transmission Date: 20240110
  Serious: No
  Sender: FDA-Public Use
  Company Number: US-JNJFOC-20160110442

PATIENT
  Sex: Male

DRUGS (23)
  1. RISPERDAL [Suspect]
     Active Substance: RISPERIDONE
     Indication: Abnormal behaviour
     Route: 048
     Dates: start: 20031113
  2. RISPERDAL [Suspect]
     Active Substance: RISPERIDONE
     Indication: Attention deficit hyperactivity disorder
     Dosage: AT VARIOUS DOSE OF 1 MG, 2 MG, 4 MG AND UNSPECIFIED DOSE
     Route: 048
     Dates: start: 20051007, end: 20080828
  3. RISPERDAL [Suspect]
     Active Substance: RISPERIDONE
     Route: 048
     Dates: start: 20090925
  4. RISPERDAL [Suspect]
     Active Substance: RISPERIDONE
     Dosage: AT VARYING DOSE OF 1 MG TWICE DAILY AND UNSPECIFIED DOSE
     Route: 048
     Dates: start: 20101207, end: 20110128
  5. RISPERDAL [Suspect]
     Active Substance: RISPERIDONE
     Dosage: IN VARYING DOSE OF 1 MG AND 2 MG TWICE DAILY
     Route: 048
     Dates: start: 2011
  6. RISPERDAL [Suspect]
     Active Substance: RISPERIDONE
     Route: 048
     Dates: start: 20130423
  7. RISPERDAL [Suspect]
     Active Substance: RISPERIDONE
     Route: 048
     Dates: start: 20141124, end: 20151203
  8. RISPERDAL [Suspect]
     Active Substance: RISPERIDONE
     Indication: Abnormal behaviour
     Route: 048
     Dates: start: 20031113
  9. RISPERDAL [Suspect]
     Active Substance: RISPERIDONE
     Indication: Attention deficit hyperactivity disorder
  10. RISPERDAL M-TAB [Suspect]
     Active Substance: RISPERIDONE
     Indication: Abnormal behaviour
     Dosage: AT VARYING DOSE OF 0.5 MG, 1 MG (AT BEDTIME) AND 2 MG
     Route: 048
     Dates: start: 20031215, end: 20050819
  11. RISPERDAL M-TAB [Suspect]
     Active Substance: RISPERIDONE
     Indication: Attention deficit hyperactivity disorder
     Route: 048
  12. RISPERIDONE [Suspect]
     Active Substance: RISPERIDONE
     Indication: Abnormal behaviour
     Route: 048
     Dates: start: 20031113
  13. RISPERIDONE [Suspect]
     Active Substance: RISPERIDONE
     Indication: Attention deficit hyperactivity disorder
     Route: 048
     Dates: start: 200808
  14. RISPERIDONE [Suspect]
     Active Substance: RISPERIDONE
     Route: 048
     Dates: start: 20081003, end: 20090827
  15. RISPERIDONE [Suspect]
     Active Substance: RISPERIDONE
     Dosage: AT VARYING DOSE OF 0.25 MG AND 2 MG
     Route: 048
     Dates: start: 20091127, end: 20101118
  16. RISPERIDONE [Suspect]
     Active Substance: RISPERIDONE
     Dosage: AT VARYING DOSE OF 2 MG AND 4 MG
     Route: 048
     Dates: start: 20110209, end: 20120109
  17. RISPERIDONE [Suspect]
     Active Substance: RISPERIDONE
     Route: 048
     Dates: start: 20130322
  18. RISPERIDONE [Suspect]
     Active Substance: RISPERIDONE
     Dosage: AT VARYING DOSE OF 1 MG AND 2 MG
     Route: 048
     Dates: start: 20130609, end: 20140909
  19. RISPERIDONE [Suspect]
     Active Substance: RISPERIDONE
     Route: 048
     Dates: end: 20151203
  20. ABILIFY [Concomitant]
     Active Substance: ARIPIPRAZOLE
     Indication: Product used for unknown indication
     Route: 065
     Dates: start: 2008, end: 2009
  21. METADATE CD [Concomitant]
     Active Substance: METHYLPHENIDATE HYDROCHLORIDE
     Indication: Product used for unknown indication
     Route: 065
     Dates: start: 2008, end: 2010
  22. VYVANSE [Concomitant]
     Active Substance: LISDEXAMFETAMINE DIMESYLATE
     Indication: Product used for unknown indication
     Route: 065
     Dates: start: 2010, end: 2012
  23. VYVANSE [Concomitant]
     Active Substance: LISDEXAMFETAMINE DIMESYLATE
     Route: 065
     Dates: end: 2012

REACTIONS (4)
  - Emotional distress [Unknown]
  - Breast discharge [Unknown]
  - Gynaecomastia [Unknown]
  - Galactorrhoea [Unknown]

NARRATIVE: CASE EVENT DATE: 20110101
